FAERS Safety Report 8198584-3 (Version None)
Quarter: 2012Q1

REPORT INFORMATION
  Report Type: 
  Country: None (occurrence: None)
  Receive Date: 20120309
  Receipt Date: 20120110
  Transmission Date: 20120608
  Serious: No
  Sender: FDA-Public Use
  Company Number: US-AMGEN-USASP2012001693

PATIENT
  Age: 83 Year
  Sex: Female

DRUGS (5)
  1. WARFARIN SODIUM [Concomitant]
     Indication: ATRIAL FIBRILLATION
  2. PROLIA [Suspect]
     Indication: OSTEOPOROSIS POSTMENOPAUSAL
     Dosage: 60 MG, Q6MO
     Dates: start: 20111201
  3. METOPROLOL SUCCINATE [Concomitant]
     Indication: ATRIAL FIBRILLATION
  4. LEVOTHYROXINE SODIUM [Concomitant]
     Indication: HYPOTHYROIDISM
  5. VITAMINS                           /00067501/ [Concomitant]

REACTIONS (1)
  - DRY SKIN [None]
